FAERS Safety Report 8066632-7 (Version None)
Quarter: 2012Q1

REPORT INFORMATION
  Report Type: 
  Country: None (occurrence: None)
  Receive Date: 20120124
  Receipt Date: 20120119
  Transmission Date: 20120608
  Serious: No
  Sender: FDA-Public Use
  Company Number: PHEH2011US010974

PATIENT
  Age: 64 Year
  Sex: Male

DRUGS (7)
  1. SPIRONOLACTONE [Concomitant]
     Dosage: 25 MG, DAILY
  2. ATENOLOL [Concomitant]
     Dosage: 50 MG, DAILY
  3. ASPIRIN [Concomitant]
     Dosage: 325 MG, DAILY
  4. LISINOPRIL [Concomitant]
     Dosage: 2.5 MG, DAILY
  5. GILENYA [Suspect]
     Indication: MULTIPLE SCLEROSIS
     Dosage: 0.5 MG, QD
     Route: 048
     Dates: start: 20110328, end: 20111116
  6. TAMSULOSIN HCL [Concomitant]
     Dosage: 0.4 MG, DAILY
  7. SIMVASTATIN [Concomitant]
     Dosage: 20 MG, DAILY

REACTIONS (2)
  - BLINDNESS TRANSIENT [None]
  - EYE OEDEMA [None]
